FAERS Safety Report 9931614 (Version 2)
Quarter: 2014Q1

REPORT INFORMATION
  Report Type: Spontaneous
  Country: US (occurrence: US)
  Receive Date: 20140228
  Receipt Date: 20140305
  Transmission Date: 20141002
  Serious: Yes (Hospitalization)
  Sender: FDA-Public Use
  Company Number: US-SA-2014SA024173

PATIENT
  Age: 67 Year
  Sex: Female

DRUGS (15)
  1. LASIX [Suspect]
     Indication: PRODUCT USED FOR UNKNOWN INDICATION
     Route: 065
  2. AMBRISENTAN [Suspect]
     Indication: PRODUCT USED FOR UNKNOWN INDICATION
     Route: 065
     Dates: start: 20130815
  3. METFORMIN [Concomitant]
  4. AMLODIPINE [Concomitant]
  5. PRAVASTATIN [Concomitant]
  6. PAXIL [Concomitant]
  7. LOSARTAN [Concomitant]
  8. RANITIDINE [Concomitant]
  9. MULTIVITAMINS [Concomitant]
  10. VITAMIN D3 [Concomitant]
  11. FISH OIL [Concomitant]
  12. COD LIVER OIL [Concomitant]
  13. GARLIC [Concomitant]
  14. OXYBUTYNIN CHLORIDE [Concomitant]
  15. FUROSEMIDE [Concomitant]

REACTIONS (3)
  - Cardiac failure congestive [Unknown]
  - Dyspnoea [Unknown]
  - Unevaluable event [Unknown]
